FAERS Safety Report 8200130-2 (Version None)
Quarter: 2012Q1

REPORT INFORMATION
  Report Type: 
  Country: None (occurrence: None)
  Receive Date: 20120306
  Receipt Date: 20120223
  Transmission Date: 20120608
  Serious: Yes (Hospitalization, Other)
  Sender: FDA-Public Use
  Company Number: 2012SP010347

PATIENT
  Sex: Female

DRUGS (5)
  1. RIBAVIRIN [Suspect]
     Indication: HEPATITIS C
     Dates: start: 20110911, end: 20111109
  2. LASIX [Concomitant]
  3. SPIRONOLACTONE [Concomitant]
  4. PEG-INTRON [Suspect]
     Indication: HEPATITIS C
     Dates: start: 20110911, end: 20111109
  5. VICTRELIS [Suspect]
     Indication: HEPATITIS C
     Dates: start: 20111011, end: 20111109

REACTIONS (9)
  - MEMORY IMPAIRMENT [None]
  - EPISTAXIS [None]
  - PYREXIA [None]
  - NAUSEA [None]
  - VOMITING [None]
  - FEELING ABNORMAL [None]
  - BONE MARROW DISORDER [None]
  - ANAEMIA [None]
  - RASH [None]
